FAERS Safety Report 25966103 (Version 1)
Quarter: 2025Q4

REPORT INFORMATION
  Report Type: Spontaneous
  Country: US (occurrence: US)
  Receive Date: 20251028
  Receipt Date: 20251028
  Transmission Date: 20260118
  Serious: Yes (Other)
  Sender: ABBVIE
  Company Number: US-ABBVIE-6521170

PATIENT
  Age: 51 Year
  Sex: Male

DRUGS (1)
  1. DEPAKOTE [Suspect]
     Active Substance: DIVALPROEX SODIUM
     Indication: Epilepsy
     Route: 048

REACTIONS (5)
  - Loss of consciousness [Unknown]
  - Product dose omission in error [Unknown]
  - Tooth loss [Unknown]
  - Haemorrhage [Unknown]
  - Liver disorder [Unknown]

NARRATIVE: CASE EVENT DATE: 20250101
